FAERS Safety Report 8156948-8 (Version None)
Quarter: 2012Q1

REPORT INFORMATION
  Report Type: 
  Country: None (occurrence: None)
  Receive Date: 20120222
  Receipt Date: 20120208
  Transmission Date: 20120608
  Serious: Yes (Hospitalization)
  Sender: FDA-Public Use
  Company Number: AU-CELGENEUS-008-50794-12020975

PATIENT
  Sex: Male
  Weight: 76 kg

DRUGS (1)
  1. VIDAZA [Suspect]
     Dosage: 145 MILLIGRAM
     Route: 065
     Dates: start: 20120116, end: 20120124

REACTIONS (3)
  - CIRCULATORY COLLAPSE [None]
  - HYPOGLYCAEMIA [None]
  - SEPSIS [None]
